FAERS Safety Report 12978591 (Version 2)
Quarter: 2016Q4

REPORT INFORMATION
  Report Type: Spontaneous
  Country: US (occurrence: US)
  Receive Date: 20161128
  Receipt Date: 20161227
  Transmission Date: 20170207
  Serious: No
  Sender: FDA-Public Use
  Company Number: US-PFIZER INC-2016545947

PATIENT
  Sex: Male

DRUGS (1)
  1. XELJANZ [Suspect]
     Active Substance: TOFACITINIB CITRATE
     Dosage: 5 MG, UNK

REACTIONS (10)
  - Back pain [Unknown]
  - Tenderness [Unknown]
  - Decreased activity [Unknown]
  - Pain [Unknown]
  - Swelling [Unknown]
  - Motor dysfunction [Unknown]
  - Arthralgia [Unknown]
  - Joint range of motion decreased [Unknown]
  - Dry mouth [Unknown]
  - Synovitis [Unknown]
